FAERS Safety Report 10677674 (Version 3)
Quarter: 2015Q1

REPORT INFORMATION
  Report Type: Spontaneous
  Country: IT (occurrence: IT)
  Receive Date: 20141229
  Receipt Date: 20150319
  Transmission Date: 20150720
  Serious: Yes (Hospitalization, Other)
  Sender: FDA-Public Use
  Company Number: IT-ROCHE-1514071

PATIENT
  Age: 64 Year
  Sex: Female

DRUGS (6)
  1. STILNOX [Suspect]
     Active Substance: ZOLPIDEM TARTRATE
     Indication: PRODUCT USED FOR UNKNOWN INDICATION
     Route: 048
     Dates: start: 20141118, end: 20141118
  2. RIVOTRIL [Suspect]
     Active Substance: CLONAZEPAM
     Indication: PRODUCT USED FOR UNKNOWN INDICATION
     Route: 048
     Dates: start: 20141118, end: 20141118
  3. TRITTICO [Suspect]
     Active Substance: TRAZODONE HYDROCHLORIDE
     Indication: PRODUCT USED FOR UNKNOWN INDICATION
     Dosage: 75MG PROLONGED-RELEASE TABLETS
     Route: 048
     Dates: start: 20141118, end: 20141118
  4. HALDOL [Suspect]
     Active Substance: HALOPERIDOL
     Dosage: 10 MG/ML ORAL DROPS, SOLUTION 30 ML BOTTLE
     Route: 048
     Dates: start: 20141118, end: 20141118
  5. HALDOL [Suspect]
     Active Substance: HALOPERIDOL
     Indication: PRODUCT USED FOR UNKNOWN INDICATION
     Dosage: 1 MG TABLETS 30 TABLETS
     Route: 048
     Dates: start: 20141118, end: 20141118
  6. LEXOTAN [Suspect]
     Active Substance: BROMAZEPAM
     Indication: PRODUCT USED FOR UNKNOWN INDICATION
     Dosage: 1.5 MG TABLETS 20 TABLETS
     Route: 048
     Dates: start: 20141118, end: 20141118

REACTIONS (7)
  - Coma [Unknown]
  - Intentional overdose [Unknown]
  - Conduction disorder [Unknown]
  - Sopor [Recovered/Resolved]
  - Self injurious behaviour [Unknown]
  - Drug abuse [Unknown]
  - Sinus bradycardia [Recovered/Resolved]

NARRATIVE: CASE EVENT DATE: 20141118
